FAERS Safety Report 5093327-4 (Version None)
Quarter: 2006Q3

REPORT INFORMATION
  Report Type: 
  Country: None (occurrence: None)
  Receive Date: 20060828
  Receipt Date: 20060815
  Transmission Date: 20061208
  Serious: Yes (Disabling, Other)
  Sender: FDA-Public Use
  Company Number: 2006096084

PATIENT
  Age: 80 Year
  Sex: Female
  Weight: 40.8 kg

DRUGS (15)
  1. SOLU-MEDROL [Suspect]
     Indication: DRUG USE FOR UNKNOWN INDICATION
     Dosage: 1000 MG
     Dates: start: 20040131, end: 20040208
  2. LANSOPRAZOLE [Concomitant]
  3. KENACORT [Concomitant]
  4. LIPLE (ALPROSTADIL) [Concomitant]
  5. PREDNISOLONE [Concomitant]
  6. SELBEX (TEPRENONE) [Concomitant]
  7. ALENDRONATE SODIUM [Concomitant]
  8. METHYCOBAL (MECOBALAMIN) [Concomitant]
  9. CALCIUM LACTATE (CALCIUM LACTATE) [Concomitant]
  10. ALFACALCIDOL (ALFACALCIDOL) [Concomitant]
  11. LIPITOR [Concomitant]
  12. OPALMON (LIMAPROST) [Concomitant]
  13. AMLODIPINE [Concomitant]
  14. LOSARTAN POSTASSIUM [Concomitant]
  15. KENACORT [Concomitant]

REACTIONS (12)
  - ACTIVATED PARTIAL THROMBOPLASTIN TIME SHORTENED [None]
  - BLINDNESS [None]
  - DRUG LEVEL DECREASED [None]
  - EYE DISORDER [None]
  - HEADACHE [None]
  - HYPOAESTHESIA [None]
  - MUSCULAR WEAKNESS [None]
  - MYELOPATHY [None]
  - OPTIC NEUROPATHY [None]
  - RETINAL VASCULAR DISORDER [None]
  - VASCULITIS [None]
  - VOMITING [None]
